FAERS Safety Report 4453683-4 (Version None)
Quarter: 2004Q3

REPORT INFORMATION
  Report Type: 
  Country: None (occurrence: None)
  Receive Date: 20040902
  Receipt Date: 20040604
  Transmission Date: 20050211
  Serious: No
  Sender: FDA-Public Use
  Company Number: 200418247BWH

PATIENT
  Age: 74 Year
  Sex: Male
  Weight: 70.3075 kg

DRUGS (10)
  1. LEVITRA [Suspect]
     Indication: ERECTILE DYSFUNCTION
     Dosage: 10 MG ; 20 MG  : TOTAL DAILY, ORAL
     Route: 048
     Dates: start: 20040501
  2. LEVITRA [Suspect]
     Indication: ERECTILE DYSFUNCTION
     Dosage: 10 MG ; 20 MG  : TOTAL DAILY, ORAL
     Route: 048
     Dates: start: 20040507
  3. ZOCOR [Concomitant]
  4. ASPIRIN [Concomitant]
  5. EFFEXOR XR [Concomitant]
  6. TOPROL-XL [Concomitant]
  7. AMITRIPTYLINE HCL [Concomitant]
  8. PLAVIX [Concomitant]
  9. ZETIA [Concomitant]
  10. HYDROCHLOROTHIAZIDE [Concomitant]

REACTIONS (1)
  - ERECTILE DYSFUNCTION [None]
